FAERS Safety Report 8991259 (Version 5)
Quarter: 2014Q2

REPORT INFORMATION
  Report Type: Report from Study
  Country: CA (occurrence: CA)
  Receive Date: 20121231
  Receipt Date: 20140508
  Transmission Date: 20141212
  Serious: Yes (Other)
  Sender: FDA-Public Use
  Company Number: CA-ROCHE-1170752

PATIENT
  Sex: Male
  Weight: 88.09 kg

DRUGS (13)
  1. OMALIZUMAB [Suspect]
     Indication: ASTHMA
     Dosage: 300 MG, 1/MONTH
     Route: 058
     Dates: start: 20060208
  2. OMALIZUMAB [Suspect]
     Indication: ASTHMA
     Dosage: 300 MG, 1/MONTH
     Route: 058
     Dates: start: 20091216
  3. OMALIZUMAB [Suspect]
     Route: 058
     Dates: start: 20090408
  4. OMALIZUMAB [Suspect]
     Route: 065
     Dates: start: 20051201
  5. OMALIZUMAB [Suspect]
     Route: 058
     Dates: start: 20130415
  6. OMALIZUMAB [Suspect]
     Route: 058
     Dates: start: 20130513
  7. OMALIZUMAB [Suspect]
     Route: 058
     Dates: start: 20131028
  8. OMALIZUMAB [Suspect]
     Route: 058
     Dates: start: 20140204
  9. OMALIZUMAB [Suspect]
     Route: 058
     Dates: start: 20140429
  10. HYZAAR [Concomitant]
     Indication: PRODUCT USED FOR UNKNOWN INDICATION
     Dosage: DOSE INCREASED
     Route: 065
     Dates: start: 20070524
  11. IMODIUM [Concomitant]
  12. PREDNISONE [Concomitant]
     Route: 065
  13. PREDNISONE [Concomitant]
     Route: 065

REACTIONS (24)
  - Bronchitis [Unknown]
  - Respiratory tract infection [Unknown]
  - Asthma [Unknown]
  - Respiratory tract congestion [Unknown]
  - Abdominal pain upper [Recovered/Resolved]
  - Nasal congestion [Recovered/Resolved]
  - Throat irritation [Recovering/Resolving]
  - Dyspnoea exertional [Recovered/Resolved]
  - Somnolence [Unknown]
  - Tension [Unknown]
  - Hypertension [Not Recovered/Not Resolved]
  - Dry eye [Unknown]
  - Eye pruritus [Unknown]
  - Diarrhoea [Recovered/Resolved]
  - Wheezing [Recovered/Resolved]
  - Dyspnoea [Unknown]
  - Sputum discoloured [Unknown]
  - Nasopharyngitis [Recovering/Resolving]
  - Oropharyngeal pain [Unknown]
  - Candida infection [Unknown]
  - Insomnia [Unknown]
  - Increased upper airway secretion [Unknown]
  - Lung disorder [Unknown]
  - Breath sounds abnormal [Unknown]
